FAERS Safety Report 8471025-4 (Version None)
Quarter: 2012Q2

REPORT INFORMATION
  Report Type: 
  Country: None (occurrence: None)
  Receive Date: 20120627
  Receipt Date: 20120615
  Transmission Date: 20120825
  Serious: Yes (Hospitalization)
  Sender: FDA-Public Use
  Company Number: NL-PFIZER INC-2012144362

PATIENT
  Age: 75 Year
  Sex: Female

DRUGS (1)
  1. EXEMESTANE [Suspect]
     Indication: BREAST CANCER
     Dosage: 25 MG, 1X/DAY
     Dates: start: 20051124, end: 20101101

REACTIONS (2)
  - NEOPLASM MALIGNANT [None]
  - METASTATIC MALIGNANT MELANOMA [None]
